FAERS Safety Report 18415340 (Version 2)
Quarter: 2020Q4

REPORT INFORMATION
  Report Type: Spontaneous
  Country: JP (occurrence: JP)
  Receive Date: 20201022
  Receipt Date: 20201125
  Transmission Date: 20210114
  Serious: Yes (Hospitalization)
  Sender: FDA-Public Use
  Company Number: JP-EISAI MEDICAL RESEARCH-EC-2020-082244

PATIENT
  Age: 72 Year
  Sex: Male

DRUGS (1)
  1. RABEPRAZOLE [Suspect]
     Active Substance: RABEPRAZOLE
     Indication: GASTROOESOPHAGEAL REFLUX DISEASE
     Route: 048
     Dates: start: 20121103

REACTIONS (2)
  - Gastrointestinal polyp haemorrhage [Recovered/Resolved]
  - Gastric polyps [Recovered/Resolved]

NARRATIVE: CASE EVENT DATE: 20180703
